FAERS Safety Report 9294837 (Version 1)
Quarter: 2013Q2

REPORT INFORMATION
  Report Type: Spontaneous
  Country: US (occurrence: US)
  Receive Date: 20130517
  Receipt Date: 20130517
  Transmission Date: 20140414
  Serious: Yes (Other)
  Sender: FDA-Public Use
  Company Number: US-PFIZER INC-2013151544

PATIENT
  Age: 63 Year
  Sex: Male
  Weight: 78.46 kg

DRUGS (4)
  1. PRISTIQ [Suspect]
     Indication: DEPRESSION
     Dosage: 100 MG, 1X/DAY
     Route: 048
     Dates: start: 2013, end: 2013
  2. PRISTIQ [Suspect]
     Dosage: 50 MG, 1X/DAY
     Route: 048
     Dates: start: 201305, end: 201305
  3. VIAGRA [Concomitant]
     Dosage: 100 MG, UNK
  4. LYRICA [Concomitant]
     Dosage: 150 MG, UNK

REACTIONS (4)
  - Coronary artery occlusion [Unknown]
  - Agitation [Recovering/Resolving]
  - Anxiety [Recovering/Resolving]
  - Nervousness [Recovering/Resolving]
